FAERS Safety Report 7298537-3 (Version None)
Quarter: 2011Q1

REPORT INFORMATION
  Report Type: 
  Country: None (occurrence: None)
  Receive Date: 20110204
  Receipt Date: 20110124
  Transmission Date: 20110831
  Serious: Yes (Hospitalization)
  Sender: FDA-Public Use
  Company Number: 2011MA000863

PATIENT
  Age: 70 Year
  Sex: Male

DRUGS (8)
  1. BACLOFEN [Suspect]
     Indication: MUSCLE SPASTICITY
     Dosage: 0.5 MG;TID;PO
     Route: 048
     Dates: start: 20090101
  2. RAMIPRIL [Concomitant]
  3. METOPROLOL SUCCINATE [Suspect]
     Indication: HYPERTENSION
     Dosage: 1 DF;QD
     Dates: start: 20090101
  4. GABAPENTIN [Concomitant]
  5. PREV MEDS [Concomitant]
  6. METFORMIN HCL [Suspect]
     Indication: DIABETES MELLITUS
     Dosage: BID;PO
     Route: 048
     Dates: start: 20090101
  7. CLOPIDOGREL [Suspect]
     Indication: PLATELET AGGREGATION
     Dosage: 1 DF;QD;PO
     Route: 048
     Dates: start: 20090101
  8. CITALOPRAM HYDROBROMIDE [Suspect]
     Indication: DEPRESSION
     Dosage: PO
     Route: 048
     Dates: start: 20090101

REACTIONS (1)
  - GASTRIC ULCER [None]
